FAERS Safety Report 6169872-7 (Version None)
Quarter: 2009Q2

REPORT INFORMATION
  Report Type: 
  Country: None (occurrence: None)
  Receive Date: 20090428
  Receipt Date: 20090421
  Transmission Date: 20091009
  Serious: Yes (Other)
  Sender: FDA-Public Use
  Company Number: US-WYE-H08395409

PATIENT
  Sex: Female
  Weight: 86.17 kg

DRUGS (8)
  1. PRISTIQ [Suspect]
     Indication: DEPRESSION
     Route: 048
     Dates: end: 20080101
  2. ZOMIG [Concomitant]
     Dosage: UNKNOWN
  3. TOPAMAX [Concomitant]
     Route: 048
  4. ERGOCALCIFEROL [Concomitant]
     Indication: VITAMIN D DECREASED
     Dosage: 50000 UNIT EVERY 1 WK
     Route: 048
     Dates: start: 20080821, end: 20081001
  5. SOMA [Concomitant]
     Route: 048
  6. LUNESTA [Concomitant]
     Indication: INSOMNIA
     Route: 048
  7. PREMARIN [Concomitant]
     Dosage: UNKNOWN
  8. PROTONIX [Concomitant]
     Dosage: UNKNOWN

REACTIONS (3)
  - ALANINE AMINOTRANSFERASE INCREASED [None]
  - ASPARTATE AMINOTRANSFERASE INCREASED [None]
  - BLOOD ALKALINE PHOSPHATASE INCREASED [None]
